FAERS Safety Report 20061982 (Version 1)
Quarter: 2021Q4

REPORT INFORMATION
  Report Type: Spontaneous
  Country: ES (occurrence: ES)
  Receive Date: 20211112
  Receipt Date: 20211112
  Transmission Date: 20220303
  Serious: Yes (Other)
  Sender: FDA-Public Use
  Company Number: ES-JNJFOC-20211109689

PATIENT
  Age: 15 Year
  Sex: Female

DRUGS (2)
  1. REMICADE [Suspect]
     Active Substance: INFLIXIMAB
     Indication: Abdominal pain upper
     Route: 042
  2. REMICADE [Suspect]
     Active Substance: INFLIXIMAB
     Indication: Diarrhoea

REACTIONS (5)
  - Opportunistic infection [Unknown]
  - Infusion related reaction [Unknown]
  - Off label use [Unknown]
  - Product use in unapproved indication [Unknown]
  - Drug ineffective [Unknown]
